FAERS Safety Report 20743488 (Version 2)
Quarter: 2022Q2

REPORT INFORMATION
  Report Type: Report from Study
  Country: BR (occurrence: BR)
  Receive Date: 20220425
  Receipt Date: 20220626
  Transmission Date: 20220720
  Serious: Yes (Hospitalization)
  Sender: FDA-Public Use
  Company Number: BR-BIOGEN-2022BI01116519

PATIENT
  Sex: Female
  Weight: 67 kg

DRUGS (1)
  1. TYSABRI [Suspect]
     Active Substance: NATALIZUMAB
     Indication: Multiple sclerosis
     Route: 042
     Dates: start: 20180228

REACTIONS (1)
  - Endometriosis [Recovered/Resolved]

NARRATIVE: CASE EVENT DATE: 20180101
